FAERS Safety Report 5575067-8 (Version None)
Quarter: 2007Q4

REPORT INFORMATION
  Report Type: 
  Country: None (occurrence: None)
  Receive Date: 20071130
  Receipt Date: 20070913
  Transmission Date: 20080405
  Serious: No
  Sender: FDA-Public Use
  Company Number: PHEH2007US11176

PATIENT
  Age: 56 Year
  Sex: Male

DRUGS (14)
  1. TEKTURNA [Suspect]
     Indication: HYPERTENSION
     Dosage: 150 MG, QHS, ORAL
     Route: 048
  2. LUPRON [Suspect]
     Indication: PROSTATE CANCER
     Dosage: 30 MG, Q4MO, INTRAMUSCULAR
     Route: 030
     Dates: start: 20070627
  3. CALCIUM ^SANDOZ^ (CALCIUM GLIBIONATE) [Suspect]
     Indication: SUPPLEMENTATION THERAPY
     Dosage: ORAL
     Route: 048
  4. SINGULAIR [Suspect]
     Indication: ASTHMA
     Dosage: 10 MG, QD, ORAL
     Route: 048
  5. METOCLOPRAMIDE [Suspect]
     Dosage: 10 MG, BID, ORAL
     Route: 048
  6. ZYRTEC [Suspect]
     Indication: SEASONAL ALLERGY
     Dosage: 10 MG, QD, ORAL
     Route: 048
  7. NIACIN [Suspect]
     Dosage: 500 MG, BID, ORAL
     Route: 048
  8. OMEGA-3(OMEGA-3 TRIGLYCERIDES) [Suspect]
     Dosage: ORAL
     Route: 048
  9. ASCORBIC ACID [Suspect]
     Dosage: ORAL
     Route: 048
  10. MULTI-VITAMINS [Suspect]
     Dosage: ORAL
     Route: 048
  11. YEAST TAB [Suspect]
     Dosage: ORAL
     Route: 048
  12. MEGACE [Concomitant]
  13. ULTRAM [Concomitant]
  14. NEXIUM [Concomitant]

REACTIONS (3)
  - CHILLS [None]
  - FLUSHING [None]
  - GENERALISED ERYTHEMA [None]
